FAERS Safety Report 11357403 (Version 2)
Quarter: 2015Q4

REPORT INFORMATION
  Report Type: Spontaneous
  Country: US (occurrence: US)
  Receive Date: 20150803
  Receipt Date: 20151013
  Transmission Date: 20160304
  Serious: Yes (Other)
  Sender: FDA-Public Use
  Company Number: US-ELI_LILLY_AND_COMPANY-US201204004999

PATIENT
  Sex: Male

DRUGS (2)
  1. RISPERDAL [Concomitant]
     Active Substance: RISPERIDONE
     Dosage: UNK
     Dates: start: 2000, end: 2009
  2. ZYPREXA [Suspect]
     Active Substance: OLANZAPINE
     Dosage: UNK
     Dates: start: 2000, end: 2009

REACTIONS (12)
  - Bladder disorder [Unknown]
  - Heart rate increased [Unknown]
  - Eye disorder [Unknown]
  - Sexually transmitted disease [Unknown]
  - Micturition urgency [Unknown]
  - Cellulitis [Unknown]
  - Sleep disorder [Unknown]
  - Oral infection [Unknown]
  - Hostility [Unknown]
  - Stevens-Johnson syndrome [Unknown]
  - Breast enlargement [Unknown]
  - Emotional distress [Unknown]
